FAERS Safety Report 7421364-0 (Version None)
Quarter: 2011Q2

REPORT INFORMATION
  Report Type: 
  Country: None (occurrence: None)
  Receive Date: 20110418
  Receipt Date: 20110406
  Transmission Date: 20111010
  Serious: Yes (Death, Other)
  Sender: FDA-Public Use
  Company Number: ZA-BRISTOL-MYERS SQUIBB COMPANY-15665318

PATIENT
  Age: 1 Day
  Sex: Male

DRUGS (3)
  1. EFAVIRENZ [Suspect]
     Route: 064
     Dates: end: 20100913
  2. TENOFOVIR DISOPROXIL FUMARATE [Concomitant]
  3. EMTRICITABINE [Concomitant]

REACTIONS (2)
  - DEATH [None]
  - SMALL FOR DATES BABY [None]
